FAERS Safety Report 6460254-7 (Version None)
Quarter: 2009Q4

REPORT INFORMATION
  Report Type: 
  Country: None (occurrence: None)
  Receive Date: 20091130
  Receipt Date: 20091117
  Transmission Date: 20100525
  Serious: Yes (Hospitalization)
  Sender: FDA-Public Use
  Company Number: PHHY2009IR51976

PATIENT
  Age: 42 Year
  Sex: Female

DRUGS (4)
  1. TASIGNA [Suspect]
     Indication: CHRONIC MYELOID LEUKAEMIA
     Dosage: 500 MG, DAILY
     Dates: start: 20090302
  2. TASIGNA [Suspect]
     Dosage: 400 MG, BID
  3. TASIGNA [Suspect]
     Dosage: 200 MG, DAILY
  4. DEXAMETHASONE TAB [Concomitant]

REACTIONS (4)
  - DEAFNESS [None]
  - HEADACHE [None]
  - INTRACRANIAL PRESSURE INCREASED [None]
  - PAPILLOEDEMA [None]
